FAERS Safety Report 15565942 (Version 1)
Quarter: 2018Q4

REPORT INFORMATION
  Report Type: Spontaneous
  Country: CA (occurrence: CA)
  Receive Date: 20181030
  Receipt Date: 20181030
  Transmission Date: 20190205
  Serious: Yes (Other)
  Sender: FDA-Public Use
  Company Number: CA-GLAXOSMITHKLINE-CA2018GSK195468

PATIENT
  Sex: Male

DRUGS (3)
  1. TRELEGY ELLIPTA [Suspect]
     Active Substance: FLUTICASONE FUROATE\UMECLIDINIUM BROMIDE\VILANTEROL TRIFENATATE
     Indication: CHRONIC OBSTRUCTIVE PULMONARY DISEASE
     Dosage: UNK
  2. OXYBUTYNIN. [Interacting]
     Active Substance: OXYBUTYNIN CHLORIDE
     Indication: CYSTITIS
     Dosage: UNK
  3. OXYBUTYNIN. [Interacting]
     Active Substance: OXYBUTYNIN CHLORIDE
     Indication: ABDOMINAL INFECTION

REACTIONS (8)
  - Dry mouth [Unknown]
  - Abdominal infection [Unknown]
  - Tremor [Unknown]
  - Drug interaction [Unknown]
  - Dysphagia [Unknown]
  - Cystitis [Unknown]
  - Lung disorder [Unknown]
  - Constipation [Unknown]
